FAERS Safety Report 25667789 (Version 3)
Quarter: 2025Q4

REPORT INFORMATION
  Report Type: Spontaneous
  Country: JP (occurrence: JP)
  Receive Date: 20250812
  Receipt Date: 20251105
  Transmission Date: 20260117
  Serious: Yes (Other)
  Sender: NOVARTIS
  Company Number: JP-002147023-NVSJ2025JP008175

PATIENT
  Age: 7 Decade
  Sex: Male

DRUGS (4)
  1. BEOVU [Suspect]
     Active Substance: BROLUCIZUMAB-DBLL
     Indication: Diabetic retinal oedema
     Dosage: 6 MG
     Route: 031
     Dates: start: 20250417, end: 20250417
  2. BEOVU [Suspect]
     Active Substance: BROLUCIZUMAB-DBLL
     Dosage: 6 MG
     Route: 031
     Dates: start: 20250605, end: 20250605
  3. BEOVU [Suspect]
     Active Substance: BROLUCIZUMAB-DBLL
     Dosage: 6 MG
     Route: 031
     Dates: start: 20250729, end: 20250729
  4. BEOVU [Suspect]
     Active Substance: BROLUCIZUMAB-DBLL
     Dosage: 6 MG
     Route: 031
     Dates: start: 20250911, end: 20250911

REACTIONS (4)
  - Keratic precipitates [Recovered/Resolved]
  - Keratic precipitates [Recovered/Resolved]
  - Intraocular pressure increased [Recovered/Resolved]
  - Anterior chamber cell [Unknown]

NARRATIVE: CASE EVENT DATE: 20250601
